FAERS Safety Report 5759591-0 (Version None)
Quarter: 2008Q2

REPORT INFORMATION
  Report Type: 
  Country: None (occurrence: None)
  Receive Date: 20080605
  Receipt Date: 20080529
  Transmission Date: 20081010
  Serious: Yes (Other)
  Sender: FDA-Public Use
  Company Number: US-ASTRAZENECA-2008UW10884

PATIENT
  Age: 15 Year
  Sex: Male
  Weight: 54.4 kg

DRUGS (4)
  1. SEROQUEL [Suspect]
     Indication: AFFECTIVE DISORDER
     Dates: start: 20070501
  2. SEROQUEL [Suspect]
     Dates: start: 20070501
  3. ZOLOFT [Concomitant]
  4. ADDERALL 10 [Concomitant]

REACTIONS (3)
  - BLOOD CALCIUM INCREASED [None]
  - NEPHROLITHIASIS [None]
  - PARATHYROID TUMOUR BENIGN [None]
